FAERS Safety Report 7488673-0 (Version None)
Quarter: 2011Q2

REPORT INFORMATION
  Report Type: 
  Country: None (occurrence: None)
  Receive Date: 20110518
  Receipt Date: 20110513
  Transmission Date: 20111010
  Serious: Yes (Hospitalization, Other)
  Sender: FDA-Public Use
  Company Number: B0713812A

PATIENT
  Age: 23 Year
  Sex: Male

DRUGS (6)
  1. UNKNOWN DRUG [Concomitant]
  2. PREDNISOLONE [Concomitant]
     Dosage: 15MG PER DAY
     Route: 048
  3. ZOVIRAX [Suspect]
     Indication: HERPES ZOSTER
     Dosage: 2400MG PER DAY
     Route: 065
     Dates: start: 20101030
  4. VOLTAREN [Concomitant]
     Indication: HERPES ZOSTER
     Route: 048
     Dates: start: 20101030, end: 20101108
  5. VITAMEDIN [Concomitant]
  6. COCARL [Concomitant]
     Route: 048

REACTIONS (10)
  - ERYTHEMA [None]
  - BLOOD LACTATE DEHYDROGENASE INCREASED [None]
  - ERYTHEMA MULTIFORME [None]
  - PYREXIA [None]
  - DRUG ERUPTION [None]
  - EOSINOPHIL COUNT INCREASED [None]
  - STREPTOCOCCUS TEST POSITIVE [None]
  - SWELLING FACE [None]
  - PRURITUS [None]
  - C-REACTIVE PROTEIN INCREASED [None]
